FAERS Safety Report 7794485-0 (Version None)
Quarter: 2011Q4

REPORT INFORMATION
  Report Type: 
  Country: None (occurrence: None)
  Receive Date: 20111004
  Receipt Date: 20110921
  Transmission Date: 20120403
  Serious: Yes (Hospitalization)
  Sender: FDA-Public Use
  Company Number: US-BAYER-201039427NA

PATIENT
  Age: 35 Year
  Sex: Female
  Weight: 96.145 kg

DRUGS (18)
  1. YASMIN [Suspect]
     Indication: CONTRACEPTION
     Dosage: UNK
     Dates: start: 20070101, end: 20080101
  2. YASMIN [Suspect]
  3. DROSPIRENONE AND ETHINYL ESTRADIOL [Suspect]
     Indication: PREMENSTRUAL SYNDROME
  4. FLAGYL [Concomitant]
  5. PRILOSEC [Concomitant]
  6. CARAFATE [Concomitant]
  7. XANAX [Concomitant]
  8. ALPRAZOLAM [Concomitant]
  9. YASMIN [Suspect]
     Indication: PREMENSTRUAL SYNDROME
  10. DROSPIRENONE AND ETHINYL ESTRADIOL [Suspect]
  11. PAMELOR [Concomitant]
  12. DARVOCET [Concomitant]
  13. ZOSYN [Concomitant]
     Indication: LEUKOCYTOSIS
  14. DROSPIRENONE AND ETHINYL ESTRADIOL [Suspect]
     Indication: CONTRACEPTION
     Dosage: UNK
     Dates: start: 20090101
  15. NORTRIPTYLINE HCL [Concomitant]
  16. ANTIBIOTICS [Concomitant]
     Indication: LEUKOCYTOSIS
  17. METOCLOPRAMIDE [Concomitant]
  18. REGLAN [Concomitant]

REACTIONS (8)
  - MEDICAL DIET [None]
  - CHOLECYSTITIS CHRONIC [None]
  - GASTRIC INFECTION [None]
  - BILIARY TRACT DISORDER [None]
  - GALLBLADDER DISORDER [None]
  - SCAR [None]
  - ABDOMINAL PAIN [None]
  - GASTROENTERITIS [None]
